FAERS Safety Report 24096857 (Version 1)
Quarter: 2024Q3

REPORT INFORMATION
  Report Type: Spontaneous
  Country: US (occurrence: US)
  Receive Date: 20240716
  Receipt Date: 20240716
  Transmission Date: 20241017
  Serious: Yes (Other)
  Sender: GRIFOLS
  Company Number: US-IGSA-BIG0024823

PATIENT
  Age: 53 Year
  Sex: Male
  Weight: 94.331 kg

DRUGS (12)
  1. GAMUNEX-C [Suspect]
     Active Substance: HUMAN IMMUNOGLOBULIN G
     Indication: Chronic inflammatory demyelinating polyradiculoneuropathy
     Dosage: 100 GRAM, Q.3WK.
     Route: 042
     Dates: start: 20230707
  2. GAMUNEX-C [Suspect]
     Active Substance: HUMAN IMMUNOGLOBULIN G
     Dosage: 100 GRAM, Q.3WK.
     Route: 042
     Dates: start: 20230522
  3. BENADRYL [Concomitant]
     Active Substance: DIPHENHYDRAMINE HYDROCHLORIDE
     Indication: Premedication
  4. DEXAMETHASONE [Concomitant]
     Active Substance: DEXAMETHASONE
     Indication: Premedication
  5. MAGNESIUM [Concomitant]
     Active Substance: MAGNESIUM
     Indication: Headache
     Dosage: 1 GRAM
  6. TIZANIDINE [Concomitant]
     Active Substance: TIZANIDINE
  7. BACLOFEN [Concomitant]
     Active Substance: BACLOFEN
  8. GABAPENTIN [Concomitant]
     Active Substance: GABAPENTIN
  9. LUNESTA [Concomitant]
     Active Substance: ESZOPICLONE
  10. WELLBUTRIN [Concomitant]
     Active Substance: BUPROPION HYDROCHLORIDE
  11. PRILOSEC [Concomitant]
     Active Substance: OMEPRAZOLE MAGNESIUM
  12. CIALIS [Concomitant]
     Active Substance: TADALAFIL

REACTIONS (3)
  - Rash [Recovered/Resolved]
  - Rash erythematous [Recovered/Resolved]
  - Rash vesicular [Recovered/Resolved]

NARRATIVE: CASE EVENT DATE: 20230530
